FAERS Safety Report 23324516 (Version 1)
Quarter: 2023Q4

REPORT INFORMATION
  Report Type: Report from Study
  Country: US (occurrence: US)
  Receive Date: 20231221
  Receipt Date: 20231221
  Transmission Date: 20240109
  Serious: Yes (Hospitalization, Other)
  Sender: FDA-Public Use
  Company Number: US-ABBVIE-5551139

PATIENT
  Sex: Male

DRUGS (3)
  1. DUOPA [Suspect]
     Active Substance: CARBIDOPA\LEVODOPA
     Indication: Parkinson^s disease
     Dosage: START DATE TEXT: MAYBE THREE YEARS AGO
     Route: 050
     Dates: start: 2020, end: 20231117
  2. DUOPA [Suspect]
     Active Substance: CARBIDOPA\LEVODOPA
  3. SINEMET [Concomitant]
     Active Substance: CARBIDOPA\LEVODOPA
     Indication: Parkinson^s disease

REACTIONS (8)
  - Loss of consciousness [Recovered/Resolved]
  - Hospitalisation [Not Recovered/Not Resolved]
  - Hallucination [Not Recovered/Not Resolved]
  - Urinary tract infection [Unknown]
  - Mental impairment [Not Recovered/Not Resolved]
  - Delusion [Not Recovered/Not Resolved]
  - Brain fog [Not Recovered/Not Resolved]
  - Unresponsive to stimuli [Recovered/Resolved]

NARRATIVE: CASE EVENT DATE: 20210101
